FAERS Safety Report 6036499-7 (Version None)
Quarter: 2009Q1

REPORT INFORMATION
  Report Type: 
  Country: None (occurrence: None)
  Receive Date: 20090112
  Receipt Date: 20081222
  Transmission Date: 20090719
  Serious: Yes (Hospitalization, Other)
  Sender: FDA-Public Use
  Company Number: A-CH2008-22865

PATIENT
  Age: 50 Year
  Sex: Female

DRUGS (7)
  1. TRACLEER [Suspect]
     Indication: SKIN ULCER
     Dosage: 125 MG BID ORAL; 62.5 MG BID ORAL
     Route: 048
     Dates: start: 20080401, end: 20080901
  2. TRACLEER [Suspect]
     Indication: SKIN ULCER
     Dosage: 125 MG BID ORAL; 62.5 MG BID ORAL
     Route: 048
     Dates: start: 20080901
  3. METHOTREXATE [Concomitant]
  4. CYCLOSPORINE [Concomitant]
  5. OMEPRAZOLE [Concomitant]
  6. AMLOPIN (AMLODIPINE) [Concomitant]
  7. FOLIC ACID [Concomitant]

REACTIONS (6)
  - ANAEMIA [None]
  - DISEASE PROGRESSION [None]
  - HAEMOGLOBIN DECREASED [None]
  - NECROSIS [None]
  - SERUM FERRITIN DECREASED [None]
  - SKIN ULCER [None]
